FAERS Safety Report 9547643 (Version 1)
Quarter: 2013Q3

REPORT INFORMATION
  Report Type: Spontaneous
  Country: KR (occurrence: None)
  Receive Date: 20130920
  Receipt Date: 20130920
  Transmission Date: 20140515
  Serious: Yes (Hospitalization)
  Sender: FDA-Public Use
  Company Number: SYM-2013-10862

PATIENT
  Sex: 0

DRUGS (3)
  1. FLOUROURACIL [Suspect]
     Indication: GASTRIC CANCER
     Route: 042
  2. MITOMYCIN [Suspect]
     Indication: GASTRIC CANCER
     Route: 042
  3. POLYSACCHARDIE-K [Suspect]
     Indication: GASTRIC CANCER
     Route: 048

REACTIONS (1)
  - Anastomotic complication [None]
